FAERS Safety Report 25815415 (Version 1)
Quarter: 2025Q3

REPORT INFORMATION
  Report Type: Spontaneous
  Country: EU (occurrence: EU)
  Receive Date: 20250918
  Receipt Date: 20250918
  Transmission Date: 20251020
  Serious: Yes (Death)
  Sender: CHEPLAPHARM
  Company Number: None

PATIENT
  Sex: Female

DRUGS (1)
  1. QUETIAPINE [Suspect]
     Active Substance: QUETIAPINE
     Indication: Agitation

REACTIONS (5)
  - Agitation [Fatal]
  - Product monitoring error [Fatal]
  - General physical health deterioration [Fatal]
  - Sudden death [Fatal]
  - Off label use [Fatal]
